FAERS Safety Report 17538224 (Version 1)
Quarter: 2020Q1

REPORT INFORMATION
  Report Type: Spontaneous
  Country: US (occurrence: US)
  Receive Date: 20200313
  Receipt Date: 20200313
  Transmission Date: 20200409
  Serious: Yes (Life-Threatening, Hospitalization, Disabling)
  Sender: FDA-Public Use
  Company Number: None

PATIENT
  Age: 31 Year
  Sex: Female
  Weight: 90 kg

DRUGS (5)
  1. LISINOPRIL-HCTZ [Concomitant]
     Active Substance: HYDROCHLOROTHIAZIDE\LISINOPRIL
  2. BASAGLAR [Concomitant]
     Active Substance: INSULIN GLARGINE
  3. ALEVE [Concomitant]
     Active Substance: NAPROXEN SODIUM
  4. MULTIVITAMIN [Concomitant]
     Active Substance: VITAMINS
  5. ADMELOG [Suspect]
     Active Substance: INSULIN LISPRO
     Indication: BLOOD GLUCOSE INCREASED
     Dosage: ?          QUANTITY:3 INJECTION(S);?
     Route: 061

REACTIONS (6)
  - Piriformis syndrome [None]
  - Diabetes mellitus inadequate control [None]
  - Ketoacidosis [None]
  - Insurance issue [None]
  - Product substitution issue [None]
  - Drug ineffective [None]

NARRATIVE: CASE EVENT DATE: 20180101
